FAERS Safety Report 22155201 (Version 10)
Quarter: 2024Q3

REPORT INFORMATION
  Report Type: Spontaneous
  Country: CA (occurrence: CA)
  Receive Date: 20230330
  Receipt Date: 20240829
  Transmission Date: 20241016
  Serious: Yes (Other)
  Sender: CELLTRION
  Company Number: CA-CELLTRION INC.-2023CA002559

PATIENT

DRUGS (23)
  1. INFLECTRA [Suspect]
     Active Substance: INFLIXIMAB-DYYB
     Indication: Crohn^s disease
     Dosage: 5 MG/KG, 0, 2, 6 THEN EVERY 8 WEEKS
     Route: 042
     Dates: start: 20221213
  2. INFLECTRA [Suspect]
     Active Substance: INFLIXIMAB-DYYB
     Dosage: 5 MG/KG, 0, 2, 6, THEN EVERY 8 WEEKS
     Route: 042
     Dates: start: 20221213
  3. INFLECTRA [Suspect]
     Active Substance: INFLIXIMAB-DYYB
     Dosage: 5 MG/KG (320 MG), 6 WEEKS SINCE LAST INFUSION
     Route: 042
     Dates: start: 20230125, end: 20230125
  4. INFLECTRA [Suspect]
     Active Substance: INFLIXIMAB-DYYB
     Dosage: 5 MG/KG (320 MG), 6 WEEKS SINCE LAST INFUSION
     Route: 042
     Dates: start: 20230125, end: 20230125
  5. INFLECTRA [Suspect]
     Active Substance: INFLIXIMAB-DYYB
     Dosage: 295 MG, EVERY 8 WEEKS
     Route: 042
     Dates: start: 20230322
  6. INFLECTRA [Suspect]
     Active Substance: INFLIXIMAB-DYYB
     Dosage: 5 MG/KG, EVERY 8 WEEKS (W0, W2,W6 AND EVERY 8 WEEKS)
     Route: 042
     Dates: start: 20230516
  7. INFLECTRA [Suspect]
     Active Substance: INFLIXIMAB-DYYB
     Dosage: 10 MG/KG, EVERY 6 WEEKS
     Route: 042
     Dates: start: 20230629
  8. INFLECTRA [Suspect]
     Active Substance: INFLIXIMAB-DYYB
     Dosage: 10 MG/KG, EVERY 6 WEEKS
     Route: 042
     Dates: start: 20230810
  9. INFLECTRA [Suspect]
     Active Substance: INFLIXIMAB-DYYB
     Dosage: 10 MG/KG (600 MG), EVERY 6 WEEKS
     Route: 042
     Dates: start: 20230921
  10. INFLECTRA [Suspect]
     Active Substance: INFLIXIMAB-DYYB
     Dosage: 10MG/KG (670 MG), EVERY 6 WEEKS
     Route: 042
     Dates: start: 20231102, end: 20231102
  11. INFLECTRA [Suspect]
     Active Substance: INFLIXIMAB-DYYB
     Dosage: 10 MG/KG, EVERY 6 WEEKS
     Route: 042
     Dates: start: 20231214
  12. INFLECTRA [Suspect]
     Active Substance: INFLIXIMAB-DYYB
     Dosage: 10MG/KG (660 MG), AFTER 5 WEEKS AND 6 DAYS (PRESCRIBED Q 6 WEEKS)
     Route: 042
     Dates: start: 20240124
  13. INFLECTRA [Suspect]
     Active Substance: INFLIXIMAB-DYYB
     Dosage: 10 MG/KG (620 MG), EVERY 6 WEEKS
     Route: 042
     Dates: start: 20240306
  14. INFLECTRA [Suspect]
     Active Substance: INFLIXIMAB-DYYB
     Dosage: 10 MG/KG (620 MG), EVERY 6 WEEKS
     Route: 042
     Dates: start: 20240417
  15. INFLECTRA [Suspect]
     Active Substance: INFLIXIMAB-DYYB
     Dosage: 10 MG/KG, EVERY 6 WEEKS
     Route: 042
     Dates: start: 20240528
  16. INFLECTRA [Suspect]
     Active Substance: INFLIXIMAB-DYYB
     Dosage: 10 MG/KG (645 MG), 6 WEEKS AND 1 DAY (PRESCRIBED, EVERY 6 WEEKS)
     Route: 042
     Dates: start: 20240710
  17. INFLECTRA [Suspect]
     Active Substance: INFLIXIMAB-DYYB
     Dosage: 10 MG/KG, (645 MG), EVERY 6 WEEKS
     Route: 042
     Dates: start: 20240821
  18. PREDNISONE [Concomitant]
     Active Substance: PREDNISONE
     Dosage: 10 MG, FREQUENCY UNKNOWN
     Route: 048
     Dates: start: 20221129, end: 20221213
  19. PREDNISONE [Concomitant]
     Active Substance: PREDNISONE
     Dosage: 5 MG, FREQUENCY UNKNOWN
     Route: 048
     Dates: start: 20221214, end: 20230103
  20. PREDNISONE [Concomitant]
     Active Substance: PREDNISONE
     Dosage: 15 MG, FREQUENCY UNKNOWN
     Route: 048
     Dates: start: 20230104
  21. PREDNISONE [Concomitant]
     Active Substance: PREDNISONE
     Dosage: 40 MG, FREQUENCY UNKNOWN
     Route: 048
     Dates: start: 20230306, end: 20230403
  22. PREDNISONE [Concomitant]
     Active Substance: PREDNISONE
     Dosage: 30 MG, FREQUENCY UNKNOWN
     Route: 048
     Dates: start: 20230404, end: 20230601
  23. PREDNISONE [Concomitant]
     Active Substance: PREDNISONE
     Dosage: 20 MG, FREQUENCY UNKNOWN
     Route: 048
     Dates: start: 20230602

REACTIONS (10)
  - Condition aggravated [Recovered/Resolved]
  - General physical health deterioration [Unknown]
  - Weight decreased [Unknown]
  - Therapeutic response shortened [Unknown]
  - Drug level below therapeutic [Unknown]
  - Body temperature decreased [Not Recovered/Not Resolved]
  - Off label use [Unknown]
  - Off label use [Unknown]
  - Intentional product use issue [Unknown]
  - Inappropriate schedule of product administration [Unknown]

NARRATIVE: CASE EVENT DATE: 20230101
